FAERS Safety Report 7603126-4 (Version None)
Quarter: 2011Q3

REPORT INFORMATION
  Report Type: 
  Country: None (occurrence: None)
  Receive Date: 20110712
  Receipt Date: 20110705
  Transmission Date: 20111222
  Serious: Yes (Other)
  Sender: FDA-Public Use
  Company Number: FR-KINGPHARMUSA00001-K201100098

PATIENT
  Age: 71 Year
  Sex: Female
  Weight: 95 kg

DRUGS (6)
  1. MEDIATOR [Suspect]
     Indication: CENTRAL OBESITY
     Dosage: 1 DF, TID
     Route: 048
     Dates: start: 20020101, end: 20090101
  2. ATENOLOL [Suspect]
     Indication: HYPERTENSION
     Dosage: 1 DF, QD
     Route: 048
     Dates: start: 20070101
  3. LERCANIDIPINE [Concomitant]
     Dosage: UNK
     Dates: start: 20090101
  4. ALTACE [Suspect]
     Indication: HYPERTENSION
     Dosage: 1 DF, QD
     Route: 048
     Dates: start: 20070101
  5. HYDROCHLOROTHIAZIDE [Suspect]
     Indication: HYPERTENSION
     Dosage: 1 DF, QD
     Route: 048
     Dates: start: 20070101
  6. CRESTOR [Suspect]
     Indication: HYPERCHOLESTEROLAEMIA
     Dosage: 5 MG, QD
     Route: 048
     Dates: start: 20040101

REACTIONS (5)
  - MALAISE [None]
  - AORTIC VALVE INCOMPETENCE [None]
  - ARRHYTHMIA [None]
  - BRADYCARDIA [None]
  - DIZZINESS [None]
